FAERS Safety Report 7325733-9 (Version None)
Quarter: 2011Q1

REPORT INFORMATION
  Report Type: 
  Country: None (occurrence: None)
  Receive Date: 20110302
  Receipt Date: 20110213
  Transmission Date: 20110831
  Serious: Yes (Other)
  Sender: FDA-Public Use
  Company Number: US-BAYER-2011-014550

PATIENT
  Sex: Male
  Weight: 86 kg

DRUGS (1)
  1. FLINTSTONES WITH EXTRA C PLUS IMMUNITY SUPPORT [Suspect]
     Indication: VITAMIN SUPPLEMENTATION
     Dosage: 20 DF, UNK
     Route: 048
     Dates: start: 20110213, end: 20110213

REACTIONS (3)
  - MALAISE [None]
  - NAUSEA [None]
  - CONFUSIONAL STATE [None]
